FAERS Safety Report 5361361-2 (Version None)
Quarter: 2007Q2

REPORT INFORMATION
  Report Type: 
  Country: None (occurrence: None)
  Receive Date: 20070612
  Receipt Date: 20070605
  Transmission Date: 20071010
  Serious: Yes (Other)
  Sender: FDA-Public Use
  Company Number: 2007JP002604

PATIENT

DRUGS (1)
  1. VESICARE [Suspect]
     Dosage: 2.5 MG, D, ORAL
     Route: 048

REACTIONS (2)
  - ANGLE CLOSURE GLAUCOMA [None]
  - CONDITION AGGRAVATED [None]
